FAERS Safety Report 10766818 (Version 1)
Quarter: 2015Q1

REPORT INFORMATION
  Report Type: Report from Study
  Country: JP (occurrence: JP)
  Receive Date: 20150205
  Receipt Date: 20150205
  Transmission Date: 20150721
  Serious: Yes (Congenital Anomaly, Other)
  Sender: FDA-Public Use
  Company Number: JP-009507513-2011SP029597

PATIENT
  Age: 17 Day
  Sex: Female
  Weight: .78 kg

DRUGS (6)
  1. VITAMINS (UNSPECIFIED) [Concomitant]
     Active Substance: VITAMINS
     Indication: LOW BIRTH WEIGHT BABY
     Dosage: 0.1 UNIT/KG, DIVIDED DOSE FREQUENCY UNKNOWN
     Route: 042
     Dates: start: 20101228, end: 20110210
  2. PLEAMIN P [Concomitant]
     Indication: HYPOGLYCAEMIA
  3. PLEAMIN P [Concomitant]
     Indication: LOW BIRTH WEIGHT BABY
     Dosage: 3.4 GM/KG/DAY, DIVIDED DOSE FREQUENCY UNKNOWN
     Route: 042
     Dates: start: 20101228, end: 20110210
  4. VITAMINS (UNSPECIFIED) [Concomitant]
     Active Substance: VITAMINS
     Indication: HYPOGLYCAEMIA
  5. DIAZOXIDE [Suspect]
     Active Substance: DIAZOXIDE
     Indication: HYPOGLYCAEMIA
     Dosage: 3.3 MG, TID
     Route: 048
     Dates: start: 20110111, end: 20110115
  6. INTRALIPID [Concomitant]
     Active Substance: EGG PHOSPHOLIPIDS\GLYCERIN\SOYBEAN OIL
     Indication: HYPOGLYCAEMIA
     Dosage: 1.8 G/KG/DAY, DIVIDED DOSE FREQUENCY UNKNOWN
     Route: 042
     Dates: start: 20110102, end: 20110110

REACTIONS (5)
  - Hyponatraemia [Recovered/Resolved]
  - Patent ductus arteriosus [Recovered/Resolved]
  - Circulatory collapse [Recovered/Resolved]
  - Urine output decreased [Recovered/Resolved]
  - Generalised oedema [Recovered/Resolved]

NARRATIVE: CASE EVENT DATE: 20110113
